FAERS Safety Report 6088769-4 (Version None)
Quarter: 2009Q1

REPORT INFORMATION
  Report Type: 
  Country: None (occurrence: None)
  Receive Date: 20090219
  Receipt Date: 20090115
  Transmission Date: 20090719
  Serious: Yes (Hospitalization, Other)
  Sender: FDA-Public Use
  Company Number: 2009EU000337

PATIENT
  Age: 46 Year
  Sex: Male

DRUGS (12)
  1. PROGRAF [Suspect]
     Indication: LIVER TRANSPLANT
     Dosage: 3 MG, BID, ORAL, 4.5 MG, BID, ORAL, 6 MG, BID, ORAL, 2 MG, BID, ORAL
     Route: 048
     Dates: start: 20080909, end: 20080913
  2. PROGRAF [Suspect]
     Indication: LIVER TRANSPLANT
     Dosage: 3 MG, BID, ORAL, 4.5 MG, BID, ORAL, 6 MG, BID, ORAL, 2 MG, BID, ORAL
     Route: 048
     Dates: start: 20080909, end: 20080913
  3. PROGRAF [Suspect]
     Indication: LIVER TRANSPLANT
     Dosage: 3 MG, BID, ORAL, 4.5 MG, BID, ORAL, 6 MG, BID, ORAL, 2 MG, BID, ORAL
     Route: 048
     Dates: start: 20080909, end: 20080913
  4. PROGRAF [Suspect]
     Indication: LIVER TRANSPLANT
     Dosage: 3 MG, BID, ORAL, 4.5 MG, BID, ORAL, 6 MG, BID, ORAL, 2 MG, BID, ORAL
     Route: 048
     Dates: start: 20080909, end: 20080913
  5. CELLCEPT [Suspect]
     Indication: RENAL TRANSPLANT
     Dosage: 1 G, BID, ORAL, 1/5 G, BID, ORAL
     Route: 048
     Dates: start: 20080909
  6. CELLCEPT [Suspect]
     Indication: RENAL TRANSPLANT
     Dosage: 1 G, BID, ORAL, 1/5 G, BID, ORAL
     Route: 048
     Dates: start: 20080909
  7. CEFTAZIDIME PENTAHYDRATE [Suspect]
     Indication: RENAL TRANSPLANT
     Dosage: 6 G, UID/QD, IV NOS, 2 G, UID/QD
     Route: 042
     Dates: start: 20080910, end: 20080915
  8. CEFTAZIDIME PENTAHYDRATE [Suspect]
     Indication: RENAL TRANSPLANT
     Dosage: 6 G, UID/QD, IV NOS, 2 G, UID/QD
     Route: 042
     Dates: start: 20080910, end: 20080915
  9. VFEND [Suspect]
     Indication: RENAL TRANSPLANT
     Dosage: 400 MG, BID, ORAL, 200 MG, BID, ORAL
     Route: 048
     Dates: start: 20080910, end: 20080915
  10. VFEND [Suspect]
     Indication: RENAL TRANSPLANT
     Dosage: 400 MG, BID, ORAL, 200 MG, BID, ORAL
     Route: 048
     Dates: start: 20080910, end: 20080915
  11. INEXIUM (ESOMEPRAZOLE SODIUM) [Concomitant]
  12. LANSOPRAZOLE [Concomitant]

REACTIONS (17)
  - BLOOD IMMUNOGLOBULIN G INCREASED [None]
  - BLOOD PRESSURE SYSTOLIC INCREASED [None]
  - CANDIDIASIS [None]
  - CHOLESTASIS [None]
  - COAGULATION FACTOR V LEVEL DECREASED [None]
  - COMPLICATIONS OF TRANSPLANTED LIVER [None]
  - CYTOLYTIC HEPATITIS [None]
  - DRUG INTERACTION [None]
  - HYPERTHERMIA [None]
  - INFLAMMATION [None]
  - LEUKOCYTOSIS [None]
  - MEDICAL DEVICE COMPLICATION [None]
  - MYALGIA [None]
  - OVERDOSE [None]
  - TACHYCARDIA [None]
  - THROMBOCYTHAEMIA [None]
  - TOXIC ENCEPHALOPATHY [None]
